FAERS Safety Report 13162463 (Version 1)
Quarter: 2017Q1

REPORT INFORMATION
  Report Type: Spontaneous
  Country: US (occurrence: US)
  Receive Date: 20170127
  Receipt Date: 20170127
  Transmission Date: 20170428
  Serious: Yes (Life-Threatening, Hospitalization, Disabling, Other)
  Sender: FDA-Public Use
  Company Number: None

PATIENT
  Age: 56 Year
  Sex: Male
  Weight: 51.75 kg

DRUGS (1)
  1. CIPROFLOXIN [Suspect]
     Active Substance: CIPROFLOXACIN
     Indication: INFECTION PROPHYLAXIS
     Dosage: ?          QUANTITY:14 TABLET(S);?
     Route: 048
     Dates: start: 20160207, end: 20160214

REACTIONS (6)
  - Tendonitis [None]
  - Suicidal ideation [None]
  - Hypoacusis [None]
  - Neuropathy peripheral [None]
  - Visual impairment [None]
  - Cognitive disorder [None]

NARRATIVE: CASE EVENT DATE: 20160207
